FAERS Safety Report 11172866 (Version 1)
Quarter: 2015Q2

REPORT INFORMATION
  Report Type: Spontaneous
  Country: TH (occurrence: TH)
  Receive Date: 20150608
  Receipt Date: 20150608
  Transmission Date: 20150821
  Serious: Yes (Other)
  Sender: FDA-Public Use
  Company Number: PHHY2015TH066345

PATIENT

DRUGS (2)
  1. ACETYLSALICYLIC ACID [Suspect]
     Active Substance: ASPIRIN
     Dosage: 4 MG/KG, QD
     Route: 065
  2. ACETYLSALICYLIC ACID [Suspect]
     Active Substance: ASPIRIN
     Indication: THALASSAEMIA
     Dosage: 2 MG/KG, QD
     Route: 065

REACTIONS (2)
  - Drug resistance [Unknown]
  - Gastrointestinal haemorrhage [Unknown]
